FAERS Safety Report 5644013-0 (Version None)
Quarter: 2008Q1

REPORT INFORMATION
  Report Type: 
  Country: None (occurrence: None)
  Receive Date: 20080131
  Receipt Date: 20071218
  Transmission Date: 20080703
  Serious: Yes (Hospitalization, Other)
  Sender: FDA-Public Use
  Company Number: 163-21880-07111372

PATIENT
  Age: 71 Year
  Sex: Male

DRUGS (1)
  1. REVLIMID [Suspect]
     Indication: MULTIPLE MYELOMA
     Dosage: 10 MG, 1 IN 1 D, ORAL
     Route: 048
     Dates: start: 20071026

REACTIONS (8)
  - ASTHENIA [None]
  - BACK INJURY [None]
  - BLOOD CALCIUM INCREASED [None]
  - CONFUSIONAL STATE [None]
  - DIVERTICULITIS [None]
  - FALL [None]
  - MUSCULAR WEAKNESS [None]
  - SEPSIS [None]
